FAERS Safety Report 20424605 (Version 3)
Quarter: 2022Q2

REPORT INFORMATION
  Report Type: Spontaneous
  Country: JP (occurrence: JP)
  Receive Date: 20220203
  Receipt Date: 20220504
  Transmission Date: 20220721
  Serious: Yes (Hospitalization, Other)
  Sender: FDA-Public Use
  Company Number: JP-Accord-252046

PATIENT
  Age: 7 Decade
  Sex: Male

DRUGS (4)
  1. CISPLATIN [Suspect]
     Active Substance: CISPLATIN
     Indication: Malignant neoplasm of ampulla of Vater
  2. GEMCITABINE [Suspect]
     Active Substance: GEMCITABINE
     Indication: Malignant neoplasm of ampulla of Vater
  3. ESOMEPRAZOLE [Concomitant]
     Active Substance: ESOMEPRAZOLE
     Route: 048
  4. URSODIOL [Concomitant]
     Active Substance: URSODIOL
     Route: 048

REACTIONS (7)
  - Decreased appetite [Recovering/Resolving]
  - Hepatic failure [Recovering/Resolving]
  - Non-alcoholic fatty liver [Recovered/Resolved]
  - Fatigue [Recovering/Resolving]
  - Drug intolerance [Unknown]
  - Condition aggravated [Recovered/Resolved]
  - Hepatic encephalopathy [Recovered/Resolved]
